FAERS Safety Report 9223396 (Version 1)
Quarter: 2013Q2

REPORT INFORMATION
  Report Type: Spontaneous
  Country: US (occurrence: US)
  Receive Date: 20130410
  Receipt Date: 20130410
  Transmission Date: 20140414
  Serious: No
  Sender: FDA-Public Use
  Company Number: US-PFIZER INC-2013109189

PATIENT
  Age: 5 Year
  Sex: Female
  Weight: 20.41 kg

DRUGS (1)
  1. AZITHROMYCIN [Suspect]
     Indication: STREPTOCOCCAL INFECTION
     Dosage: 250 MG, 1X/DAY
     Route: 048
     Dates: start: 20130328, end: 20130401

REACTIONS (2)
  - Drug administration error [Unknown]
  - Abdominal pain [Not Recovered/Not Resolved]
